FAERS Safety Report 20369741 (Version 4)
Quarter: 2022Q1

REPORT INFORMATION
  Report Type: Spontaneous
  Country: US (occurrence: US)
  Receive Date: 20220124
  Receipt Date: 20220228
  Transmission Date: 20220423
  Serious: Yes (Other)
  Sender: FDA-Public Use
  Company Number: US-PFIZER INC-202200038042

PATIENT
  Age: 58 Year
  Sex: Female
  Weight: 67.13 kg

DRUGS (1)
  1. EPINEPHRINE [Suspect]
     Active Substance: EPINEPHRINE
     Dosage: UNK

REACTIONS (4)
  - Seizure [Unknown]
  - Drug hypersensitivity [Unknown]
  - Palpitations [Unknown]
  - Tremor [Unknown]
